FAERS Safety Report 8812039 (Version 2)
Quarter: 2012Q4

REPORT INFORMATION
  Report Type: 
  Country: US (occurrence: US)
  Receive Date: 20120927
  Receipt Date: 20121026
  Transmission Date: 20130627
  Serious: Yes (Other)
  Sender: FDA-Public Use
  Company Number: US-MYLANLABS-2012S1019547

PATIENT
  Age: 63 Year
  Sex: Male
  Weight: 117.48 kg

DRUGS (10)
  1. EXTENDED PHENYTOIN SODIUM CAPSULES, USP [Suspect]
     Indication: GRAND MAL CONVULSION
     Route: 048
     Dates: end: 20120703
  2. TRAZODONE HCL [Concomitant]
     Route: 048
  3. CLONAZEPAM [Concomitant]
     Route: 048
  4. FLUOXETINE [Concomitant]
     Route: 048
  5. GABAPENTIN [Concomitant]
     Route: 048
  6. METFORMIN HCL [Concomitant]
     Dosage: sustained release osmotic push 24hr BID
  7. LISINOPRIL [Concomitant]
     Route: 048
  8. SIMVASTATIN [Concomitant]
     Route: 048
  9. SYNTHROID [Concomitant]
     Route: 048
  10. ALLOPURINOL [Concomitant]
     Route: 048

REACTIONS (14)
  - Convulsion [Recovered/Resolved]
  - Fall [Unknown]
  - Limb injury [Not Recovered/Not Resolved]
  - Joint injury [Not Recovered/Not Resolved]
  - Joint injury [Not Recovered/Not Resolved]
  - Head injury [Not Recovered/Not Resolved]
  - Joint dislocation [Recovering/Resolving]
  - Nerve injury [Not Recovered/Not Resolved]
  - Hypoaesthesia [Not Recovered/Not Resolved]
  - Pain in extremity [Not Recovered/Not Resolved]
  - Unevaluable event [Not Recovered/Not Resolved]
  - Insomnia [Not Recovered/Not Resolved]
  - Anticonvulsant drug level decreased [Recovered/Resolved]
  - Treatment noncompliance [Recovered/Resolved]
